FAERS Safety Report 21639968 (Version 2)
Quarter: 2023Q1

REPORT INFORMATION
  Report Type: Report from Study
  Country: US (occurrence: US)
  Receive Date: 20221124
  Receipt Date: 20230205
  Transmission Date: 20230418
  Serious: Yes (Death, Hospitalization, Other)
  Sender: FDA-Public Use
  Company Number: US-ABBVIE-4213070

PATIENT
  Sex: Male

DRUGS (1)
  1. IMBRUVICA [Suspect]
     Active Substance: IBRUTINIB
     Indication: Laboratory test abnormal
     Route: 048
     Dates: start: 2018, end: 2022

REACTIONS (7)
  - Death [Fatal]
  - Pleural effusion [Not Recovered/Not Resolved]
  - Pneumonia [Not Recovered/Not Resolved]
  - Pulmonary mass [Unknown]
  - Heart rate increased [Not Recovered/Not Resolved]
  - Oesophageal oedema [Unknown]
  - Pulmonary oedema [Unknown]
